FAERS Safety Report 8065659-9 (Version None)
Quarter: 2012Q1

REPORT INFORMATION
  Report Type: 
  Country: None (occurrence: None)
  Receive Date: 20120124
  Receipt Date: 20120116
  Transmission Date: 20120608
  Serious: Yes (Hospitalization, Other)
  Sender: FDA-Public Use
  Company Number: US-BAYER-2011-043371

PATIENT
  Age: 26 Year
  Sex: Female

DRUGS (11)
  1. TRILEPTAL [Concomitant]
     Indication: AFFECTIVE DISORDER
     Dosage: 300 MG, DATE RANGE: 1 MONTH
  2. WELLBUTRIN XL [Concomitant]
     Dosage: 150 MG, DAILY
  3. ABILIFY [Concomitant]
     Indication: BIPOLAR DISORDER
     Dosage: 5 MG, DATE RANGE: 6 MONTHS TO 1 YEAR
  4. DEPAKOTE ER [Concomitant]
     Dosage: 750 MG, DAILY
     Dates: start: 20090430
  5. YAZ [Suspect]
     Indication: PREMENSTRUAL SYNDROME
  6. STRATTERA [Concomitant]
     Indication: ATTENTION DEFICIT/HYPERACTIVITY DISORDER
     Dosage: DATE RANGE: 3 MONTHS
  7. CLONAZEPAM [Concomitant]
     Indication: PANIC ATTACK
  8. YAZ [Suspect]
     Indication: ACNE
     Dosage: UNK
     Dates: start: 20060101, end: 20090101
  9. PROZAC [Concomitant]
     Dosage: 20 MG, DAILY
     Dates: start: 20090430
  10. VISTARIL [Concomitant]
     Indication: ANXIETY
     Dosage: 25 MG, DATE RANGE: 1-2 YEARS
  11. CLONAZEPAM [Concomitant]
     Indication: ANXIETY
     Dosage: 1 MG, DAILY, DATE RANGE: 2-3 YEARS
     Dates: start: 20090306

REACTIONS (3)
  - PAIN [None]
  - CHOLECYSTITIS CHRONIC [None]
  - BILIARY COLIC [None]
